FAERS Safety Report 8014099-7 (Version None)
Quarter: 2011Q4

REPORT INFORMATION
  Report Type: 
  Country: None (occurrence: None)
  Receive Date: 20111223
  Receipt Date: 20111206
  Transmission Date: 20120403
  Serious: Yes (Life-Threatening)
  Sender: FDA-Public Use
  Company Number: AUR-APL-2011-06209

PATIENT
  Age: 61 Year
  Sex: Female

DRUGS (2)
  1. ALTEPLASE (ALTEPLASE) [Suspect]
     Indication: ISCHAEMIC STROKE
     Dosage: (6.1 MG), INTRAVENOUS BOLUS, (54.9 MG), INTRAVENOUS
     Route: 040
  2. RAMIPRIL [Suspect]
     Indication: HYPERTENSION

REACTIONS (3)
  - DRUG INTERACTION [None]
  - ISCHAEMIC STROKE [None]
  - ANAPHYLACTOID SHOCK [None]
